FAERS Safety Report 19026318 (Version 5)
Quarter: 2022Q2

REPORT INFORMATION
  Report Type: Spontaneous
  Country: US (occurrence: US)
  Receive Date: 20210318
  Receipt Date: 20220516
  Transmission Date: 20220721
  Serious: No
  Sender: FDA-Public Use
  Company Number: US-PFIZER INC-2021213958

PATIENT
  Age: 68 Year
  Sex: Female

DRUGS (1)
  1. XELJANZ XR [Suspect]
     Active Substance: TOFACITINIB CITRATE
     Indication: Rheumatoid arthritis
     Dosage: 11 MG, DAILY
     Route: 048
     Dates: start: 20210111

REACTIONS (6)
  - Diarrhoea [Not Recovered/Not Resolved]
  - Hypertension [Unknown]
  - Peripheral swelling [Not Recovered/Not Resolved]
  - Musculoskeletal discomfort [Recovered/Resolved]
  - Intentional dose omission [Unknown]
  - Musculoskeletal discomfort [Recovering/Resolving]
